FAERS Safety Report 13255340 (Version 1)
Quarter: 2017Q1

REPORT INFORMATION
  Report Type: Spontaneous
  Country: US (occurrence: US)
  Receive Date: 20170221
  Receipt Date: 20170221
  Transmission Date: 20170428
  Serious: No
  Sender: FDA-Public Use
  Company Number: US-JNJFOC-20170127836

PATIENT
  Age: 26 Year
  Sex: Female
  Weight: 74.84 kg

DRUGS (3)
  1. INVEGA SUSTENNA [Suspect]
     Active Substance: PALIPERIDONE PALMITATE
     Indication: SCHIZOAFFECTIVE DISORDER
     Route: 030
  2. INVEGA TRINZA [Suspect]
     Active Substance: PALIPERIDONE PALMITATE
     Indication: SCHIZOAFFECTIVE DISORDER
     Route: 030
     Dates: start: 20151209, end: 2016
  3. INVEGA [Suspect]
     Active Substance: PALIPERIDONE
     Indication: SCHIZOAFFECTIVE DISORDER
     Route: 048
     Dates: start: 201601, end: 201603

REACTIONS (6)
  - Hallucination [Unknown]
  - Off label use [Unknown]
  - Exposure during pregnancy [Unknown]
  - Malaise [Recovered/Resolved]
  - Product use issue [Unknown]
  - Paranoia [Unknown]

NARRATIVE: CASE EVENT DATE: 2016
